FAERS Safety Report 8839465 (Version 1)
Quarter: 2012Q4

REPORT INFORMATION
  Report Type: Spontaneous
  Country: US (occurrence: None)
  Receive Date: 20121012
  Receipt Date: 20121012
  Transmission Date: 20130627
  Serious: Yes (Life-Threatening)
  Sender: FDA-Public Use
  Company Number: None

PATIENT
  Age: 12 Year
  Sex: Male
  Weight: 40.82 kg

DRUGS (2)
  1. SINGULAIR [Suspect]
     Indication: ASTHMA
     Dosage: 1
     Route: 048
     Dates: start: 20110715, end: 20111102
  2. SINGULAIR [Concomitant]

REACTIONS (13)
  - Depression [None]
  - Pain in extremity [None]
  - Arthralgia [None]
  - Tic [None]
  - Suicidal ideation [None]
  - Panic attack [None]
  - Withdrawal syndrome [None]
  - Paraesthesia [None]
  - Tremor [None]
  - Headache [None]
  - Aggression [None]
  - Anger [None]
  - Fear [None]
